FAERS Safety Report 4376103-7 (Version None)
Quarter: 2004Q2

REPORT INFORMATION
  Report Type: 
  Country: None (occurrence: None)
  Receive Date: 20040611
  Receipt Date: 20040524
  Transmission Date: 20050107
  Serious: Yes (Hospitalization)
  Sender: FDA-Public Use
  Company Number: SE-GLAXOSMITHKLINE-B0333995A

PATIENT
  Age: 12 Year
  Sex: Male

DRUGS (3)
  1. SERETIDE [Suspect]
     Indication: ASTHMA
     Route: 055
     Dates: start: 20030603, end: 20040201
  2. STEROIDS [Suspect]
  3. MESALAMINE [Suspect]

REACTIONS (10)
  - ABDOMINAL PAIN [None]
  - ABNORMAL FAECES [None]
  - COLITIS [None]
  - CROHN'S DISEASE [None]
  - DIARRHOEA HAEMORRHAGIC [None]
  - ERYTHEMA MULTIFORME [None]
  - GASTROINTESTINAL DISORDER [None]
  - INFLAMMATORY BOWEL DISEASE [None]
  - INTESTINAL HAEMORRHAGE [None]
  - MOUTH HAEMORRHAGE [None]
